FAERS Safety Report 9270800 (Version 4)
Quarter: 2014Q1

REPORT INFORMATION
  Report Type: Spontaneous
  Country: US (occurrence: US)
  Receive Date: 20130503
  Receipt Date: 20140304
  Transmission Date: 20141002
  Serious: Yes (Hospitalization, Disabling, Other)
  Sender: FDA-Public Use
  Company Number: US-009507513-1305USA000100

PATIENT
  Sex: Female

DRUGS (2)
  1. FOSAMAX [Suspect]
     Indication: OSTEOPOROSIS
     Dosage: 70 MG, QW
     Route: 048
     Dates: start: 2007, end: 2010
  2. ACTONEL [Suspect]
     Indication: OSTEOPOROSIS
     Dosage: 35 MG, QW
     Route: 048
     Dates: start: 2001, end: 2007

REACTIONS (31)
  - Femur fracture [Recovered/Resolved]
  - Open reduction of fracture [Recovered/Resolved]
  - Blood creatine phosphokinase increased [Recovering/Resolving]
  - Low turnover osteopathy [Not Recovered/Not Resolved]
  - Pubis fracture [Recovering/Resolving]
  - Cerebrovascular accident [Unknown]
  - Fall [Recovering/Resolving]
  - Angiopathy [Unknown]
  - Hypertension [Unknown]
  - Dyslipidaemia [Unknown]
  - Depression [Unknown]
  - Vertebral osteophyte [Unknown]
  - Subcutaneous haematoma [Unknown]
  - Hypoxia [Recovering/Resolving]
  - Right ventricular systolic pressure increased [Unknown]
  - Tricuspid valve incompetence [Unknown]
  - Micturition urgency [Unknown]
  - Pollakiuria [Unknown]
  - Hypomagnesaemia [Recovered/Resolved]
  - Anaemia postoperative [Unknown]
  - Nasal disorder [Unknown]
  - Bursitis [Unknown]
  - Asthma [Unknown]
  - Anaemia [Unknown]
  - Hypoxia [Unknown]
  - Emphysema [Unknown]
  - Pulmonary mass [Unknown]
  - Hepatic steatosis [Unknown]
  - Spinal osteoarthritis [Unknown]
  - Chronic obstructive pulmonary disease [Not Recovered/Not Resolved]
  - Hypomagnesaemia [Unknown]
